FAERS Safety Report 5092698-2 (Version None)
Quarter: 2006Q3

REPORT INFORMATION
  Report Type: 
  Country: None (occurrence: None)
  Receive Date: 20060828
  Receipt Date: 20060814
  Transmission Date: 20061208
  Serious: Yes (Other)
  Sender: FDA-Public Use
  Company Number: 2006002229

PATIENT
  Age: 58 Year
  Sex: Male
  Weight: 90.7194 kg

DRUGS (1)
  1. VIAGRA [Suspect]
     Indication: LIBIDO DISORDER
     Dosage: 50 MG, ORAL
     Route: 048
     Dates: start: 20040101, end: 20050101

REACTIONS (3)
  - CYANOPSIA [None]
  - DRUG INEFFECTIVE [None]
  - HYPERTENSION [None]
